FAERS Safety Report 6080859-5 (Version None)
Quarter: 2009Q1

REPORT INFORMATION
  Report Type: 
  Country: None (occurrence: None)
  Receive Date: 20090217
  Receipt Date: 20090204
  Transmission Date: 20090719
  Serious: Yes (Other)
  Sender: FDA-Public Use
  Company Number: US-SANOFI-SYNTHELABO-A03200900488

PATIENT
  Age: 22 Year
  Sex: Female

DRUGS (2)
  1. AMBIEN [Suspect]
     Indication: HEADACHE
     Route: 048
  2. ALCOHOL [Suspect]
     Indication: DRUG USE FOR UNKNOWN INDICATION
     Dosage: UNK
     Route: 048

REACTIONS (5)
  - AMNESIA [None]
  - CONTUSION [None]
  - OFF LABEL USE [None]
  - VAGINAL HAEMORRHAGE [None]
  - VICTIM OF SEXUAL ABUSE [None]
